FAERS Safety Report 15120882 (Version 1)
Quarter: 2018Q3

REPORT INFORMATION
  Report Type: Spontaneous
  Country: US (occurrence: US)
  Receive Date: 20180709
  Receipt Date: 20180709
  Transmission Date: 20181010
  Serious: No
  Sender: FDA-Public Use
  Company Number: US-SA-2018SA177545

PATIENT
  Age: 63 Year
  Sex: Female

DRUGS (1)
  1. PRALUENT [Suspect]
     Active Substance: ALIROCUMAB
     Dosage: 75 MG/ML, QOW
     Route: 058
     Dates: start: 20180530, end: 20180625

REACTIONS (4)
  - Cough [Unknown]
  - Fatigue [Unknown]
  - Rash pruritic [Unknown]
  - Myalgia [Unknown]

NARRATIVE: CASE EVENT DATE: 2018
